FAERS Safety Report 23987261 (Version 1)
Quarter: 2024Q2

REPORT INFORMATION
  Report Type: Spontaneous
  Country: US (occurrence: US)
  Receive Date: 20240618
  Receipt Date: 20240618
  Transmission Date: 20240716
  Serious: Yes (Death)
  Sender: FDA-Public Use
  Company Number: US-PFIZER INC-PV202400078309

PATIENT
  Age: 61 Year
  Sex: Male

DRUGS (3)
  1. DOXYCYCLINE HYCLATE [Suspect]
     Active Substance: DOXYCYCLINE HYCLATE
     Indication: Vibrio vulnificus infection
     Dosage: UNK
  2. CEFIDEROCOL [Concomitant]
     Active Substance: CEFIDEROCOL
     Dosage: UNK
  3. VANCOMYCIN [Concomitant]
     Active Substance: VANCOMYCIN
     Dosage: UNK

REACTIONS (1)
  - Drug ineffective [Fatal]
